FAERS Safety Report 10299981 (Version 2)
Quarter: 2014Q4

REPORT INFORMATION
  Report Type: Spontaneous
  Country: JP (occurrence: JP)
  Receive Date: 20140711
  Receipt Date: 20141013
  Transmission Date: 20150528
  Serious: Yes (Other)
  Sender: FDA-Public Use
  Company Number: PHHY2012JP132077

PATIENT
  Age: 6 Year
  Sex: Male

DRUGS (4)
  1. TASIGNA [Suspect]
     Active Substance: NILOTINIB
     Indication: CHRONIC MYELOID LEUKAEMIA
     Dates: start: 20120212
  2. MADOPAR [Concomitant]
     Active Substance: BENSERAZIDE HYDROCHLORIDE\LEVODOPA
  3. SERENACE [Concomitant]
     Active Substance: HALOPERIDOL
  4. PYRETHIA//PROMETHAZINE HYDROCHLORIDE [Concomitant]

REACTIONS (1)
  - Blood creatine phosphokinase increased [Unknown]
